FAERS Safety Report 16028699 (Version 1)
Quarter: 2019Q1

REPORT INFORMATION
  Report Type: Spontaneous
  Country: JP (occurrence: JP)
  Receive Date: 20190304
  Receipt Date: 20190304
  Transmission Date: 20190418
  Serious: Yes (Other)
  Sender: FDA-Public Use
  Company Number: JP-PFIZER INC-2019085587

PATIENT
  Age: 44 Year
  Sex: Male

DRUGS (1)
  1. CABASER [Suspect]
     Active Substance: CABERGOLINE
     Dosage: UNK
     Dates: start: 201212, end: 201312

REACTIONS (4)
  - Drug effect incomplete [Unknown]
  - Spinal osteoarthritis [Unknown]
  - Condition aggravated [Unknown]
  - Tracheal stenosis [Unknown]
